FAERS Safety Report 4334134-7 (Version None)
Quarter: 2004Q2

REPORT INFORMATION
  Report Type: 
  Country: None (occurrence: None)
  Receive Date: 20040405
  Receipt Date: 20040329
  Transmission Date: 20050107
  Serious: Yes (Hospitalization, Other)
  Sender: FDA-Public Use
  Company Number: 2004-03-0062

PATIENT
  Age: 51 Year
  Sex: Female
  Weight: 56.6996 kg

DRUGS (4)
  1. ELOCON [Suspect]
     Indication: RASH
     Dosage: 0.1 % TOP-DERM
     Route: 061
     Dates: start: 20010901, end: 20040226
  2. VITAMINS/MINERALS/DIETARY SUPPLEMENTS (NOS) [Concomitant]
  3. ALPHA LIPOIC ACID (ANTIOXIDANT) [Concomitant]
  4. NUTRITIONAL SUPPLEMENTS [Concomitant]

REACTIONS (9)
  - ADRENAL DISORDER [None]
  - ALLERGY TEST [None]
  - ASTHENIA [None]
  - AUTOIMMUNE THYROIDITIS [None]
  - BREAST DISORDER [None]
  - MEDICATION ERROR [None]
  - RASH [None]
  - SENSATION OF PRESSURE [None]
  - THYROID DISORDER [None]
